FAERS Safety Report 23066340 (Version 1)
Quarter: 2023Q4

REPORT INFORMATION
  Report Type: Spontaneous
  Country: GB (occurrence: GB)
  Receive Date: 20231015
  Receipt Date: 20231015
  Transmission Date: 20240109
  Serious: Yes (Life-Threatening, Hospitalization)
  Sender: FDA-Public Use
  Company Number: GB-MHRA-MED-202310050113180740-HVCLM

PATIENT
  Age: 58 Year
  Sex: Male
  Weight: 100 kg

DRUGS (1)
  1. MYFENAX [Suspect]
     Active Substance: MYCOPHENOLATE MOFETIL
     Indication: Adverse drug reaction
     Dosage: DURATION : 111 DAYS
     Route: 065
     Dates: start: 20230530, end: 20230918

REACTIONS (2)
  - Thrombosis [Not Recovered/Not Resolved]
  - Medication error [Unknown]

NARRATIVE: CASE EVENT DATE: 20230916
